FAERS Safety Report 5027712-3 (Version None)
Quarter: 2006Q2

REPORT INFORMATION
  Report Type: 
  Country: None (occurrence: None)
  Receive Date: 20060428
  Receipt Date: 20060213
  Transmission Date: 20061013
  Serious: No
  Sender: FDA-Public Use
  Company Number: COT_0408_2006

PATIENT
  Age: 56 Year
  Sex: Female
  Weight: 77.1115 kg

DRUGS (12)
  1. VENTAVIS [Suspect]
     Indication: PULMONARY HYPERTENSION
     Dosage: 5 MCG 5XD IH
     Dates: start: 20050401
  2. SILDENAFIL [Concomitant]
  3. PREMARIN [Concomitant]
  4. VASERETIC [Concomitant]
  5. LASIX [Concomitant]
  6. AMBIEN [Concomitant]
  7. LORAZEPAM [Concomitant]
  8. INDERAL [Concomitant]
  9. LITHIUM CARBONATE [Concomitant]
  10. LIPITOR [Concomitant]
  11. COUMADIN [Concomitant]
  12. MAGIC MOUTHWASH [Concomitant]

REACTIONS (3)
  - ORAL CANDIDIASIS [None]
  - ORAL MUCOSAL BLISTERING [None]
  - PHARYNGITIS STREPTOCOCCAL [None]
